FAERS Safety Report 16810165 (Version 1)
Quarter: 2019Q3

REPORT INFORMATION
  Report Type: Report from Study
  Country: LU (occurrence: LU)
  Receive Date: 20190916
  Receipt Date: 20190916
  Transmission Date: 20191005
  Serious: Yes (Hospitalization)
  Sender: FDA-Public Use
  Company Number: LU-CELGENEUS-LUX-2015053013

PATIENT
  Age: 71 Year
  Sex: Male
  Weight: 85 kg

DRUGS (3)
  1. REVLIMID [Suspect]
     Active Substance: LENALIDOMIDE
     Indication: PLASMA CELL MYELOMA
     Route: 048
     Dates: start: 20110901, end: 20111123
  2. PLAVIX [Concomitant]
     Active Substance: CLOPIDOGREL BISULFATE
     Indication: ARTERITIS
     Route: 065
  3. REVLIMID [Suspect]
     Active Substance: LENALIDOMIDE
     Indication: PROSTATE CANCER

REACTIONS (6)
  - Osteonecrosis of jaw [Not Recovered/Not Resolved]
  - Renal failure [Recovered/Resolved]
  - Malaise [Recovered/Resolved]
  - Prostate cancer [Recovered/Resolved with Sequelae]
  - Gait inability [Recovered/Resolved]
  - Somnolence [Recovered/Resolved]

NARRATIVE: CASE EVENT DATE: 20131202
